FAERS Safety Report 7268703-1 (Version None)
Quarter: 2011Q1

REPORT INFORMATION
  Report Type: 
  Country: None (occurrence: None)
  Receive Date: 20110201
  Receipt Date: 20110124
  Transmission Date: 20110831
  Serious: Yes (Death, Life-Threatening)
  Sender: FDA-Public Use
  Company Number: BE-GENZYME-CLOF-1001412

PATIENT
  Sex: Male
  Weight: 102 kg

DRUGS (3)
  1. EVOLTRA [Suspect]
     Indication: PRODUCT USED FOR UNKNOWN INDICATION
     Dosage: UNK
     Route: 042
     Dates: start: 20110113, end: 20110117
  2. CYTARABINE [Suspect]
     Indication: PRODUCT USED FOR UNKNOWN INDICATION
     Dosage: UNK
     Route: 042
     Dates: start: 20110113, end: 20110119
  3. IDARUBICIN [Suspect]
     Indication: PRODUCT USED FOR UNKNOWN INDICATION
     Dosage: UNK
     Route: 042
     Dates: start: 20110113, end: 20110119

REACTIONS (3)
  - ABDOMINAL PAIN [None]
  - CIRCULATORY COLLAPSE [None]
  - CEREBRAL HAEMORRHAGE [None]
